FAERS Safety Report 9921910 (Version 1)
Quarter: 2014Q1

REPORT INFORMATION
  Report Type: Other
  Country: TR (occurrence: TR)
  Receive Date: 20140225
  Receipt Date: 20140225
  Transmission Date: 20141002
  Serious: Yes (Hospitalization)
  Sender: FDA-Public Use
  Company Number: TR-BRISTOL-MYERS SQUIBB COMPANY-20232393

PATIENT
  Age: 48 Year
  Sex: Male

DRUGS (1)
  1. WARFARIN SODIUM [Suspect]

REACTIONS (3)
  - Wrong drug administered [Unknown]
  - Intestinal haematoma [Unknown]
  - Intestinal obstruction [Unknown]
